FAERS Safety Report 6825057-X (Version None)
Quarter: 2010Q3

REPORT INFORMATION
  Report Type: 
  Country: None (occurrence: None)
  Receive Date: 20100708
  Receipt Date: 20070103
  Transmission Date: 20110219
  Serious: Yes (Other)
  Sender: FDA-Public Use
  Company Number: US-PFIZER INC-2006142079

PATIENT
  Sex: Female
  Weight: 70.3 kg

DRUGS (9)
  1. CHANTIX [Suspect]
     Indication: SMOKING CESSATION THERAPY
     Dates: start: 20061101
  2. XANAX [Suspect]
     Indication: MOOD ALTERED
  3. ATIVAN [Suspect]
     Indication: MOOD ALTERED
  4. LEVOXYL [Concomitant]
  5. LIPITOR [Concomitant]
  6. ACETYLSALICYLIC ACID [Concomitant]
  7. MULTI-VITAMINS [Concomitant]
  8. TUMS [Concomitant]
  9. ACIPHEX [Concomitant]

REACTIONS (8)
  - ABDOMINAL DISCOMFORT [None]
  - ABNORMAL DREAMS [None]
  - ARTHRALGIA [None]
  - HOT FLUSH [None]
  - NAUSEA [None]
  - NIGHTMARE [None]
  - POLYURIA [None]
  - POOR QUALITY SLEEP [None]
